FAERS Safety Report 7433350-5 (Version None)
Quarter: 2011Q2

REPORT INFORMATION
  Report Type: 
  Country: None (occurrence: None)
  Receive Date: 20110422
  Receipt Date: 20110419
  Transmission Date: 20111010
  Serious: Yes (Other)
  Sender: FDA-Public Use
  Company Number: JP-PFIZER INC-2010138432

PATIENT
  Sex: Male

DRUGS (5)
  1. LYRICA [Suspect]
     Indication: FIBROMYALGIA
     Dosage: 300 MG, 2X/DAY
     Dates: start: 20100701
  2. GABAPEN [Suspect]
     Dosage: 800 MG, 3X/DAY
     Dates: start: 20100701
  3. CYMBALTA [Concomitant]
  4. RIVOTRIL [Concomitant]
  5. SELBEX [Concomitant]

REACTIONS (9)
  - BONE DISORDER [None]
  - DIZZINESS [None]
  - HYPOAESTHESIA ORAL [None]
  - SOMNOLENCE [None]
  - DYSGEUSIA [None]
  - LIVER FUNCTION TEST ABNORMAL [None]
  - BLOOD TRIGLYCERIDES INCREASED [None]
  - WEIGHT INCREASED [None]
  - BLOOD CHOLESTEROL INCREASED [None]
